FAERS Safety Report 4556535-4 (Version None)
Quarter: 2005Q1

REPORT INFORMATION
  Report Type: 
  Country: None (occurrence: None)
  Receive Date: 20050118
  Receipt Date: 20041019
  Transmission Date: 20050727
  Serious: Yes (Death, Hospitalization)
  Sender: FDA-Public Use
  Company Number: 800244

PATIENT
  Age: 16 Year
  Sex: Male

DRUGS (2)
  1. DIANEAL [Suspect]
     Indication: PERITONEAL DIALYSIS
     Dosage: INTRAPERITONEAL
     Route: 033
  2. HOMECHOICE PRO CYCLER [Concomitant]

REACTIONS (7)
  - BEDRIDDEN [None]
  - CEREBROVASCULAR ACCIDENT [None]
  - COMA [None]
  - GENERAL PHYSICAL HEALTH DETERIORATION [None]
  - HYPOTENSION [None]
  - NECROTISING FASCIITIS [None]
  - SEPSIS [None]
